FAERS Safety Report 6216449-0 (Version None)
Quarter: 2009Q2

REPORT INFORMATION
  Report Type: 
  Country: None (occurrence: None)
  Receive Date: 20090605
  Receipt Date: 20090527
  Transmission Date: 20091009
  Serious: Yes (Other)
  Sender: FDA-Public Use
  Company Number: GB-AVENTIS-200915542GDDC

PATIENT
  Age: 18 Year
  Sex: Female

DRUGS (1)
  1. TELFAST                            /01314201/ [Suspect]
     Route: 048
     Dates: start: 20090301, end: 20090511

REACTIONS (3)
  - ANXIETY [None]
  - HALLUCINATION [None]
  - NERVOUSNESS [None]
